FAERS Safety Report 6668060-5 (Version None)
Quarter: 2010Q2

REPORT INFORMATION
  Report Type: 
  Country: None (occurrence: None)
  Receive Date: 20100405
  Receipt Date: 20100323
  Transmission Date: 20101027
  Serious: Yes (Other)
  Sender: FDA-Public Use
  Company Number: CA-GENENTECH-300038

PATIENT
  Sex: Female
  Weight: 67 kg

DRUGS (9)
  1. LUCENTIS [Suspect]
     Indication: CHOROIDAL NEOVASCULARISATION
     Dosage: 0.5 MG, 1/MONTH
     Route: 031
     Dates: start: 20090528
  2. LUCENTIS [Suspect]
     Dosage: 0.5 MG, 1/MONTH
     Route: 031
     Dates: start: 20100223
  3. VITAMIN D [Concomitant]
     Indication: DRUG USE FOR UNKNOWN INDICATION
  4. PRAVASTATIN [Concomitant]
     Indication: DRUG USE FOR UNKNOWN INDICATION
  5. METFORMIN [Concomitant]
     Indication: DRUG USE FOR UNKNOWN INDICATION
  6. LISINOPRIL [Concomitant]
     Indication: DRUG USE FOR UNKNOWN INDICATION
  7. ASPIRIN [Concomitant]
     Indication: DRUG USE FOR UNKNOWN INDICATION
  8. CALCIUM [Concomitant]
     Indication: DRUG USE FOR UNKNOWN INDICATION
  9. CETIRIZINE HCL [Concomitant]
     Indication: DRUG USE FOR UNKNOWN INDICATION
     Dosage: 10 MG, UNK

REACTIONS (15)
  - ASTHENIA [None]
  - BLOOD CREATININE INCREASED [None]
  - BLOOD UREA INCREASED [None]
  - DYSARTHRIA [None]
  - ELECTROCARDIOGRAM ABNORMAL [None]
  - EYE PAIN [None]
  - EYE PRURITUS [None]
  - LOCAL SWELLING [None]
  - MUSCULOSKELETAL PAIN [None]
  - OCULAR HYPERAEMIA [None]
  - SENSATION OF FOREIGN BODY [None]
  - SINUS ARRHYTHMIA [None]
  - SMALL CELL LUNG CANCER STAGE UNSPECIFIED [None]
  - SWELLING FACE [None]
  - VISUAL IMPAIRMENT [None]
